FAERS Safety Report 5400573-6 (Version None)
Quarter: 2007Q3

REPORT INFORMATION
  Report Type: 
  Country: None (occurrence: None)
  Receive Date: 20070730
  Receipt Date: 20060703
  Transmission Date: 20080115
  Serious: No
  Sender: FDA-Public Use
  Company Number: A0610997A

PATIENT
  Age: 3 Month
  Sex: Male

DRUGS (1)
  1. ZANTAC 150 [Suspect]
     Indication: ILL-DEFINED DISORDER
     Dosage: 25MG TWICE PER DAY
     Route: 048
     Dates: start: 20060630

REACTIONS (3)
  - DRUG ADMINISTRATION ERROR [None]
  - HICCUPS [None]
  - VOMITING [None]
